FAERS Safety Report 25961430 (Version 1)
Quarter: 2025Q4

REPORT INFORMATION
  Report Type: Spontaneous
  Country: US (occurrence: US)
  Receive Date: 20251027
  Receipt Date: 20251027
  Transmission Date: 20260118
  Serious: No
  Sender: AUROBINDO
  Company Number: US-AUROBINDO-AUR-APL-2025-022832

PATIENT
  Age: 81 Year
  Sex: Female
  Weight: 56.7 kg

DRUGS (2)
  1. ESCITALOPRAM OXALATE [Suspect]
     Active Substance: ESCITALOPRAM OXALATE
     Indication: Depression
     Dosage: UNK, ONCE A DAY
     Route: 048
  2. ARMOUR THYROID [Concomitant]
     Active Substance: THYROID, PORCINE
     Indication: Thyroid disorder
     Dosage: UNK, ONCE A DAY
     Route: 065

REACTIONS (2)
  - Nausea [Unknown]
  - Hypersomnia [Unknown]
